FAERS Safety Report 6854137-8 (Version None)
Quarter: 2010Q3

REPORT INFORMATION
  Report Type: 
  Country: None (occurrence: None)
  Receive Date: 20100717
  Receipt Date: 20080204
  Transmission Date: 20110219
  Serious: No
  Sender: FDA-Public Use
  Company Number: US-PFIZER INC-2007106214

PATIENT
  Age: 59 Year
  Sex: Male
  Weight: 113.4 kg

DRUGS (6)
  1. CHANTIX [Suspect]
     Indication: SMOKING CESSATION THERAPY
     Route: 048
     Dates: start: 20071201
  2. WARFARIN SODIUM [Interacting]
     Indication: THROMBOSIS PROPHYLAXIS
     Route: 048
     Dates: start: 20060501
  3. LIPITOR [Concomitant]
  4. FUROSEMIDE [Concomitant]
  5. NEXIUM [Concomitant]
  6. LISINOPRIL [Concomitant]

REACTIONS (3)
  - DIZZINESS [None]
  - DRUG INTERACTION [None]
  - DYSPNOEA [None]
